FAERS Safety Report 9410723 (Version 4)
Quarter: 2014Q1

REPORT INFORMATION
  Report Type: Spontaneous
  Country: US (occurrence: US)
  Receive Date: 20130719
  Receipt Date: 20140127
  Transmission Date: 20141002
  Serious: Yes (Death, Hospitalization, Other)
  Sender: FDA-Public Use
  Company Number: US-B.I. PHARMACEUTICALS,INC./RIDGEFIELD-2013-BI-20941BP

PATIENT
  Age: 89 Year
  Sex: Female
  Weight: 63.5 kg

DRUGS (16)
  1. PRADAXA [Suspect]
     Indication: ATRIAL FIBRILLATION
     Dosage: 150 MG
     Route: 048
     Dates: start: 201206, end: 20120720
  2. CELEXA [Concomitant]
     Dosage: 20 MG
     Route: 048
  3. LINEZOLID [Concomitant]
     Dosage: 1200 MG
     Route: 048
  4. AUGMENTIN [Concomitant]
     Route: 048
  5. CARVEDILOL [Concomitant]
     Dosage: 50 MG
     Route: 048
  6. MIRALAX [Concomitant]
     Indication: FAECES HARD
     Dosage: 17 G
     Route: 048
  7. LASIX [Concomitant]
     Indication: CARDIAC FAILURE CONGESTIVE
     Dosage: 40 MG
     Route: 048
  8. FERREX [Concomitant]
     Indication: ANAEMIA
     Dosage: 150 MG
     Route: 048
  9. DOCUSATE SODIUM [Concomitant]
     Indication: FAECES HARD
     Dosage: 480 MG
     Route: 048
  10. BISACODYL [Concomitant]
     Indication: FAECES HARD
     Dosage: 10 MG
     Route: 048
  11. MULTIVITAMIN WITH  MINERAL [Concomitant]
     Indication: SUPPLEMENTATION THERAPY
     Route: 048
  12. OMEPRAZOLE [Concomitant]
     Dosage: 20 MG
     Route: 048
  13. ZYPREXA [Concomitant]
     Dosage: 1.25 MG
     Route: 048
  14. NAMENDA [Concomitant]
     Dosage: 20 MG
     Route: 048
  15. OXYCODONE-ACETAMINOPHEN [Concomitant]
     Route: 048
  16. LISINOPRIL [Concomitant]
     Indication: HYPERTENSION
     Dosage: 10 MG
     Route: 048

REACTIONS (9)
  - Shock [Fatal]
  - Gastrointestinal haemorrhage [Fatal]
  - Renal haemorrhage [Unknown]
  - Vaginal haemorrhage [Unknown]
  - Sepsis [Unknown]
  - Dehydration [Unknown]
  - Hepatocellular injury [Unknown]
  - Renal failure acute [Unknown]
  - Mouth haemorrhage [Unknown]
